FAERS Safety Report 9274160 (Version 2)
Quarter: 2013Q2

REPORT INFORMATION
  Report Type: Spontaneous
  Country: US (occurrence: US)
  Receive Date: 20130506
  Receipt Date: 20130611
  Transmission Date: 20140414
  Serious: Yes (Other)
  Sender: FDA-Public Use
  Company Number: US-009507513-1305USA000095

PATIENT
  Age: 66 Year
  Sex: Female

DRUGS (3)
  1. VICTRELIS [Suspect]
     Indication: HEPATITIS C VIRUS TEST POSITIVE
     Dosage: UNK
     Dates: start: 20130228
  2. REBETOL [Suspect]
     Indication: HEPATITIS C VIRUS TEST POSITIVE
     Dosage: UNK
     Route: 048
     Dates: start: 20130228
  3. PEGASYS [Suspect]
     Indication: HEPATITIS C VIRUS TEST POSITIVE
     Dosage: UNK
     Dates: start: 20130228

REACTIONS (18)
  - Loss of consciousness [Unknown]
  - Dyspepsia [Unknown]
  - Nausea [Unknown]
  - Diarrhoea [Unknown]
  - Dizziness [Unknown]
  - Haemoglobin decreased [Unknown]
  - Anaemia [Unknown]
  - Fall [Unknown]
  - Influenza like illness [Unknown]
  - Headache [Unknown]
  - Chills [Unknown]
  - Hyperhidrosis [Unknown]
  - Abdominal pain [Unknown]
  - Fatigue [Unknown]
  - Metabolic disorder [Recovered/Resolved]
  - Decreased appetite [Unknown]
  - Flushing [Unknown]
  - Appetite disorder [Recovered/Resolved]
